FAERS Safety Report 8906824 (Version 1)
Quarter: 2012Q4

REPORT INFORMATION
  Report Type: 
  Country: US (occurrence: US)
  Receive Date: 20121114
  Receipt Date: 20121114
  Transmission Date: 20130627
  Serious: Yes (Hospitalization, Other)
  Sender: FDA-Public Use
  Company Number: US-ELI_LILLY_AND_COMPANY-US201204001915

PATIENT
  Age: 71 Year
  Sex: Female

DRUGS (15)
  1. FORTEO [Suspect]
     Indication: OSTEOPOROSIS
     Dosage: 20 ug, qd
     Route: 065
     Dates: start: 20120404
  2. FORTEO [Suspect]
     Dosage: 20 ug, qd
     Route: 065
  3. FORTEO [Suspect]
     Dosage: 20 ug, qd
     Route: 065
  4. PARNATE [Concomitant]
     Dosage: UNK
  5. ASPIRIN [Concomitant]
     Dosage: UNK
  6. NEXIUM [Concomitant]
     Dosage: 40 mg, bid
  7. LUNESTA [Concomitant]
     Dosage: 3 mg, each evening
  8. SIMVASTATIN [Concomitant]
     Dosage: UNK
  9. DIAZEPAM [Concomitant]
     Dosage: 5 mg, UNK
  10. PREVACID [Concomitant]
     Dosage: UNK
  11. LORCET 10/650 [Concomitant]
     Dosage: UNK
  12. SEROQUEL [Concomitant]
     Dosage: 100 mg, each evening
  13. VITAMIN D [Concomitant]
     Dosage: 10000 u, other
  14. B12 [Concomitant]
     Dosage: UNK UNK, monthly (1/M)
  15. CALCIUM [Concomitant]
     Dosage: UNK, qd

REACTIONS (11)
  - Hip fracture [Unknown]
  - Fall [Unknown]
  - Transient ischaemic attack [Unknown]
  - Dizziness [Unknown]
  - Aphasia [Recovered/Resolved]
  - Fear of falling [Unknown]
  - Gait disturbance [Unknown]
  - Impaired healing [Unknown]
  - Pain [Unknown]
  - Back pain [Unknown]
  - Device misuse [Unknown]
